FAERS Safety Report 9971633 (Version 1)
Quarter: 2014Q1

REPORT INFORMATION
  Report Type: Report from Study
  Country: US (occurrence: US)
  Receive Date: 20140306
  Receipt Date: 20140306
  Transmission Date: 20141002
  Serious: No
  Sender: FDA-Public Use
  Company Number: US-ABBVIE-13P-163-1150474-00

PATIENT
  Age: 42 Year
  Sex: Female

DRUGS (5)
  1. HUMIRA [Suspect]
     Indication: CROHN^S DISEASE
     Dates: start: 20130808
  2. HUMIRA [Suspect]
     Dates: start: 20130822
  3. HUMIRA [Suspect]
     Dates: start: 20130905
  4. HYDROCODONE [Concomitant]
     Indication: PAIN
  5. BUDESONIDE [Concomitant]
     Indication: CROHN^S DISEASE

REACTIONS (1)
  - Incorrect dose administered [Recovered/Resolved]
